FAERS Safety Report 8504520 (Version 3)
Quarter: 2013Q4

REPORT INFORMATION
  Report Type: Report from Study
  Country: US (occurrence: US)
  Receive Date: 20120411
  Receipt Date: 20131219
  Transmission Date: 20140711
  Serious: Yes (Hospitalization)
  Sender: FDA-Public Use
  Company Number: US-ACTELION-A-US2012-63583

PATIENT
  Age: 82 Year
  Sex: Male

DRUGS (5)
  1. TRACLEER [Suspect]
     Indication: PULMONARY ARTERIAL HYPERTENSION
     Dosage: 60 MG, BID
     Route: 048
     Dates: start: 20100928, end: 20101129
  2. TRACLEER [Suspect]
     Dosage: 125 MG, BID
     Route: 048
     Dates: start: 20111130
  3. REVATIO [Concomitant]
  4. COUMADIN [Concomitant]
  5. RAMIPRIL [Concomitant]

REACTIONS (5)
  - Kidney infection [Unknown]
  - Cystitis [Unknown]
  - Nephrolithiasis [Recovered/Resolved]
  - Stent placement [Recovered/Resolved]
  - Prostatomegaly [Unknown]
